FAERS Safety Report 15288809 (Version 2)
Quarter: 2018Q4

REPORT INFORMATION
  Report Type: Spontaneous
  Country: DE (occurrence: DE)
  Receive Date: 20180817
  Receipt Date: 20181129
  Transmission Date: 20190204
  Serious: Yes (Life-Threatening, Other)
  Sender: FDA-Public Use
  Company Number: PHHY2000DE004094

PATIENT
  Age: 75 Year
  Sex: Female
  Weight: 69 kg

DRUGS (85)
  1. ACETYLSALICYLIC ACID [Suspect]
     Active Substance: ASPIRIN
     Indication: CORONARY ARTERY DISEASE
     Dosage: 100 MG,QD
     Route: 048
     Dates: end: 19981116
  2. DEXPANTHENOL. [Suspect]
     Active Substance: DEXPANTHENOL
     Dosage: 3 DF,QD
     Route: 048
     Dates: start: 19981207
  3. PHENYTOIN. [Suspect]
     Active Substance: PHENYTOIN
     Indication: PROPHYLAXIS
     Dosage: 100 MG,QD
     Route: 065
     Dates: start: 19981116, end: 19981121
  4. PHENYTOIN. [Suspect]
     Active Substance: PHENYTOIN
     Dosage: 100 MG,QD
     Route: 048
     Dates: start: 19981121
  5. INSULIN HUMAN [Concomitant]
     Active Substance: INSULIN HUMAN
     Indication: PRODUCT USED FOR UNKNOWN INDICATION
     Dosage: 8 IU, QD
     Route: 058
     Dates: start: 19981120, end: 19981120
  6. MEVINACOR [Concomitant]
     Active Substance: LOVASTATIN
     Indication: HYPERCHOLESTEROLAEMIA
     Dosage: .5 DF, QD
     Route: 048
     Dates: start: 19981116, end: 19981208
  7. GLUCOSE [Concomitant]
     Active Substance: DEXTROSE
     Indication: PRODUCT USED FOR UNKNOWN INDICATION
     Dosage: UNK
     Route: 065
     Dates: start: 19981120, end: 19981122
  8. RANITIDINE HYDROCHLORIDE. [Concomitant]
     Active Substance: RANITIDINE HYDROCHLORIDE
     Dosage: UNK
     Route: 065
     Dates: start: 19981116, end: 19981119
  9. ARISTOCHOL KONZENTRAT [Concomitant]
     Active Substance: DIETARY SUPPLEMENT\HERBALS
     Dosage: UNK
     Route: 065
     Dates: start: 19981111, end: 19981207
  10. THIOPENTAL [Concomitant]
     Active Substance: THIOPENTAL
     Indication: GENERAL ANAESTHESIA
     Dosage: 400 MG, QD
     Route: 042
     Dates: start: 19981120, end: 19981120
  11. THIOPENTAL [Concomitant]
     Active Substance: THIOPENTAL
     Indication: PRODUCT USED FOR UNKNOWN INDICATION
     Dosage: 400 MG, QD
     Route: 042
     Dates: start: 19981120, end: 19981120
  12. SODIUM CHLORIDE. [Concomitant]
     Active Substance: SODIUM CHLORIDE
     Indication: FLUID REPLACEMENT
     Dosage: 548 ML, QD
     Route: 042
     Dates: start: 19981120, end: 19981122
  13. DEHYDROBENZPERIDOL [Concomitant]
     Active Substance: DROPERIDOL
     Indication: GENERAL ANAESTHESIA
     Dosage: 1.25 MG, QD
     Route: 042
     Dates: start: 19981120, end: 19981120
  14. RAMIPRIL. [Suspect]
     Active Substance: RAMIPRIL
     Indication: HYPERTENSION
     Dosage: 2.5 MG,QD
     Route: 048
     Dates: start: 19981110, end: 19981208
  15. NITRAZEPAM [Suspect]
     Active Substance: NITRAZEPAM
     Indication: SEDATION
     Dosage: 7.5 MG,QD
     Route: 042
     Dates: start: 19981119, end: 19981120
  16. NITRAZEPAM [Suspect]
     Active Substance: NITRAZEPAM
     Dosage: 5 MG, QD
     Route: 048
     Dates: start: 19981119, end: 19981207
  17. PHENYTOIN. [Suspect]
     Active Substance: PHENYTOIN
     Dosage: 100 MG,QD
     Route: 048
     Dates: start: 19981120, end: 19981120
  18. CLOBUTINOL HYDROCHLORIDE [Suspect]
     Active Substance: CLOBUTINOL HYDROCHLORIDE
     Indication: COUGH
     Dosage: 20 DF,QD
     Route: 048
     Dates: start: 19981124, end: 19981124
  19. ADALAT [Concomitant]
     Active Substance: NIFEDIPINE
     Indication: PRODUCT USED FOR UNKNOWN INDICATION
     Dosage: 1 DF, QD
     Route: 048
     Dates: start: 19981121, end: 19981121
  20. KALINOR-BRAUSETABLETTEN [Concomitant]
     Active Substance: POTASSIUM CARBONATE\POTASSIUM CITRATE
     Indication: PRODUCT USED FOR UNKNOWN INDICATION
     Dosage: 50 ML, QD
     Route: 042
     Dates: start: 19981121, end: 19981122
  21. SUFENTA [Concomitant]
     Active Substance: SUFENTANIL CITRATE
     Indication: GENERAL ANAESTHESIA
     Dosage: 5 ML, QD
     Route: 042
     Dates: start: 19981120, end: 19981120
  22. POTASSIUM CHLORIDE. [Concomitant]
     Active Substance: POTASSIUM CHLORIDE
     Indication: PRODUCT USED FOR UNKNOWN INDICATION
     Dosage: 50 ML, QD
     Route: 042
     Dates: start: 19981120, end: 19981122
  23. ATROPINE SULFATE. [Concomitant]
     Active Substance: ATROPINE SULFATE
     Indication: PRODUCT USED FOR UNKNOWN INDICATION
     Dosage: .5 MG, QD
     Route: 042
     Dates: start: 19981120, end: 19981120
  24. DEXAMETHASONE. [Concomitant]
     Active Substance: DEXAMETHASONE
     Dosage: 8 MG, QD
     Route: 048
     Dates: start: 19981116, end: 19981128
  25. DEHYDROBENZPERIDOL [Concomitant]
     Active Substance: DROPERIDOL
     Dosage: UNK
     Route: 065
     Dates: start: 19981120, end: 19981120
  26. DEHYDROBENZPERIDOL [Concomitant]
     Active Substance: DROPERIDOL
     Indication: PRODUCT USED FOR UNKNOWN INDICATION
     Dosage: 1.25 MG, QD
     Route: 042
     Dates: start: 19981120, end: 19981120
  27. DILZEM [Concomitant]
     Active Substance: DILTIAZEM
     Indication: CORONARY ARTERY DISEASE
     Dosage: UNK
     Route: 048
     Dates: start: 19981110, end: 19981119
  28. PHENOBARBITAL. [Suspect]
     Active Substance: PHENOBARBITAL
     Indication: PROPHYLAXIS
     Dosage: 1 MG,QD
     Route: 048
     Dates: start: 19981001, end: 19981115
  29. FLUIMUCIL [Suspect]
     Active Substance: ACETYLCYSTEINE
     Indication: PRODUCT USED FOR UNKNOWN INDICATION
     Dosage: 1 DF,QD
     Route: 048
     Dates: start: 19981202
  30. MEVINACOR [Concomitant]
     Active Substance: LOVASTATIN
     Dosage: UNK
     Route: 065
     Dates: start: 19981116, end: 19981208
  31. SOSTRIL [Concomitant]
     Active Substance: RANITIDINE HYDROCHLORIDE
     Indication: ULCER
     Dosage: 4 ?G/L, QD
     Route: 065
     Dates: start: 19981120, end: 19981120
  32. RANITIDINE HYDROCHLORIDE. [Concomitant]
     Active Substance: RANITIDINE HYDROCHLORIDE
     Dosage: 1 DF, QD
     Route: 048
     Dates: start: 19981116
  33. DOPAMINE HYDROCHLORIDE. [Concomitant]
     Active Substance: DOPAMINE HYDROCHLORIDE
     Indication: PRODUCT USED FOR UNKNOWN INDICATION
     Dosage: UNK
     Route: 065
     Dates: start: 19981120, end: 19981120
  34. SODIUM CHLORIDE. [Concomitant]
     Active Substance: SODIUM CHLORIDE
     Dosage: UNK
     Route: 065
     Dates: start: 19981120, end: 19981122
  35. DEXAMETHASONE SODIUM PHOSPHATE. [Concomitant]
     Active Substance: DEXAMETHASONE SODIUM PHOSPHATE
     Indication: PRODUCT USED FOR UNKNOWN INDICATION
     Dosage: UNK
     Route: 065
     Dates: start: 19981120, end: 19981121
  36. FORTECORTIN [Concomitant]
     Active Substance: DEXAMETHASONE
     Indication: PROPHYLAXIS
     Dosage: 16 MG, QD
     Route: 042
     Dates: start: 19981120, end: 19981121
  37. PANCURONIUM [Concomitant]
     Active Substance: PANCURONIUM
     Indication: GENERAL ANAESTHESIA
     Dosage: 6 MG, QD
     Route: 042
     Dates: start: 19981120, end: 19981120
  38. EBRANTIL [Concomitant]
     Active Substance: URAPIDIL
     Indication: HYPERTENSION
     Dosage: 110 MG, QD
     Route: 042
     Dates: start: 19981120, end: 19981120
  39. DEXPANTHENOL. [Suspect]
     Active Substance: DEXPANTHENOL
     Dosage: 3 DF,QD
     Route: 048
     Dates: start: 19981121, end: 19981203
  40. CODEINE [Suspect]
     Active Substance: CODEINE
     Indication: COUGH
     Dosage: 15 DF,QD
     Route: 048
     Dates: start: 19981204
  41. CLOBUTINOL HYDROCHLORIDE [Suspect]
     Active Substance: CLOBUTINOL HYDROCHLORIDE
     Dosage: 20 DF,QD
     Route: 048
     Dates: start: 19981130, end: 19981205
  42. MEVINACOR [Concomitant]
     Active Substance: LOVASTATIN
     Indication: PRODUCT USED FOR UNKNOWN INDICATION
     Dosage: .5 DF, QD
     Route: 048
     Dates: start: 19981116, end: 19981208
  43. GASTROZEPIN [Concomitant]
     Active Substance: PIRENZEPINE HYDROCHLORIDE
     Dosage: UNK
     Route: 065
     Dates: start: 19981120, end: 19981120
  44. GASTROZEPIN [Concomitant]
     Active Substance: PIRENZEPINE HYDROCHLORIDE
     Indication: ULCER
     Dosage: 2 DF, QD
     Route: 042
     Dates: start: 19981120, end: 19981120
  45. RANITIDINE HYDROCHLORIDE. [Concomitant]
     Active Substance: RANITIDINE HYDROCHLORIDE
     Indication: ULCER
     Dosage: 300 MG, QD
     Route: 042
     Dates: start: 19981120, end: 19981121
  46. SUFENTA [Concomitant]
     Active Substance: SUFENTANIL CITRATE
     Dosage: UNK
     Route: 065
     Dates: start: 19981120, end: 19981120
  47. POTASSIUM CHLORIDE. [Concomitant]
     Active Substance: POTASSIUM CHLORIDE
     Dosage: UNK
     Route: 065
     Dates: start: 19981120, end: 19981122
  48. ISOFLURANE. [Concomitant]
     Active Substance: ISOFLURANE
     Indication: GENERAL ANAESTHESIA
  49. DEXAMETHASONE. [Concomitant]
     Active Substance: DEXAMETHASONE
     Indication: PROPHYLAXIS
     Dosage: UNK
     Route: 065
     Dates: start: 19981116, end: 19981128
  50. URAPIDIL [Concomitant]
     Active Substance: URAPIDIL
     Indication: PRODUCT USED FOR UNKNOWN INDICATION
     Dosage: UNK
     Route: 065
     Dates: start: 19981120, end: 19981120
  51. DEXPANTHENOL. [Suspect]
     Active Substance: DEXPANTHENOL
     Indication: DRY MOUTH
     Dosage: 3 DF,QD
     Route: 048
     Dates: start: 19981121, end: 20181207
  52. CLOBUTINOL HYDROCHLORIDE [Suspect]
     Active Substance: CLOBUTINOL HYDROCHLORIDE
     Dosage: 20 DF,QD
     Route: 048
     Dates: start: 19981128, end: 19981128
  53. GASTROZEPIN [Concomitant]
     Active Substance: PIRENZEPINE HYDROCHLORIDE
     Indication: PRODUCT USED FOR UNKNOWN INDICATION
     Dosage: 2 DF, QD
     Route: 042
     Dates: start: 19981120, end: 19981120
  54. DILTIAZEM HYDROCHLORIDE. [Concomitant]
     Active Substance: DILTIAZEM HYDROCHLORIDE
     Indication: PRODUCT USED FOR UNKNOWN INDICATION
     Dosage: UNK
     Route: 065
     Dates: start: 19981110, end: 19981119
  55. ARISTOCHOL KONZENTRAT [Concomitant]
     Active Substance: DIETARY SUPPLEMENT\HERBALS
     Indication: PRODUCT USED FOR UNKNOWN INDICATION
     Dosage: 1 DF, QD
     Route: 048
     Dates: start: 19981116, end: 19981207
  56. DOPAMINE HYDROCHLORIDE. [Concomitant]
     Active Substance: DOPAMINE HYDROCHLORIDE
     Dosage: 200 MG, QD
     Route: 042
     Dates: start: 19981120, end: 19981120
  57. SODIUM CHLORIDE. [Concomitant]
     Active Substance: SODIUM CHLORIDE
     Indication: PRODUCT USED FOR UNKNOWN INDICATION
     Dosage: 548 ML, QD
     Route: 042
     Dates: start: 19981120, end: 19981122
  58. POTASSIUM CHLORIDE. [Concomitant]
     Active Substance: POTASSIUM CHLORIDE
     Indication: HYPOKALAEMIA
     Dosage: 50 ML, QD
     Route: 042
     Dates: start: 19981120, end: 19981122
  59. PASPERTIN [Concomitant]
     Indication: NAUSEA
     Dosage: 25 GTT DROPS, QD
     Route: 048
     Dates: start: 19981119, end: 19981120
  60. DIAZEPAM. [Suspect]
     Active Substance: DIAZEPAM
     Indication: SEDATION
     Dosage: 5 MG,QD
     Route: 048
     Dates: start: 19981119, end: 19981119
  61. PHENYTOIN. [Suspect]
     Active Substance: PHENYTOIN
     Dosage: 100 MG,QD
     Route: 048
     Dates: start: 19981116, end: 19981119
  62. INSULIN HUMAN [Concomitant]
     Active Substance: INSULIN HUMAN
     Indication: HYPERGLYCAEMIA
     Dosage: 8 IU, QD
     Route: 058
     Dates: start: 19981120, end: 19981120
  63. ADALAT [Concomitant]
     Active Substance: NIFEDIPINE
     Indication: HYPERTENSION
     Dosage: 1 DF, QD
     Route: 048
     Dates: start: 19981121, end: 19981121
  64. METOCLOPRAMIDE. [Concomitant]
     Active Substance: METOCLOPRAMIDE
     Indication: PRODUCT USED FOR UNKNOWN INDICATION
     Dosage: UNK
     Route: 065
     Dates: start: 19981119, end: 19981120
  65. PANCURONIUM BROMIDE. [Concomitant]
     Active Substance: PANCURONIUM BROMIDE
     Indication: PRODUCT USED FOR UNKNOWN INDICATION
     Dosage: UNK
     Route: 065
     Dates: start: 19981120, end: 19981120
  66. KALINOR-BRAUSETABLETTEN [Concomitant]
     Active Substance: POTASSIUM CARBONATE\POTASSIUM CITRATE
     Indication: HYPOKALAEMIA
  67. FENTANYL JANSSEN [Concomitant]
     Active Substance: FENTANYL
     Dosage: UNK
     Route: 065
     Dates: start: 19981120, end: 19981120
  68. FENTANYL JANSSEN [Concomitant]
     Active Substance: FENTANYL
     Indication: PRODUCT USED FOR UNKNOWN INDICATION
     Dosage: .25 MG, QD
     Route: 042
     Dates: start: 19981120, end: 19981120
  69. ISOFLURANE. [Concomitant]
     Active Substance: ISOFLURANE
     Indication: PRODUCT USED FOR UNKNOWN INDICATION
  70. MAGALDRATE [Suspect]
     Active Substance: MAGALDRATE
     Indication: ULCER
     Dosage: 1 DF,QD
     Route: 048
     Dates: start: 19981128
  71. NITRAZEPAM [Suspect]
     Active Substance: NITRAZEPAM
     Dosage: 5 MG,QD
     Route: 048
     Dates: start: 19981119, end: 19981207
  72. ADALAT [Concomitant]
     Active Substance: NIFEDIPINE
     Dosage: UNK
     Route: 065
     Dates: start: 19981121, end: 19981121
  73. RANITIDINE HYDROCHLORIDE. [Concomitant]
     Active Substance: RANITIDINE HYDROCHLORIDE
     Indication: PRODUCT USED FOR UNKNOWN INDICATION
     Dosage: 300 MG, QD
     Route: 042
     Dates: start: 19981120, end: 19981121
  74. ARISTOCHOL KONZENTRAT [Concomitant]
     Active Substance: DIETARY SUPPLEMENT\HERBALS
     Indication: CONSTIPATION
     Dosage: 1 DF, QD
     Route: 048
     Dates: start: 19981116, end: 19981207
  75. THIOPENTAL [Concomitant]
     Active Substance: THIOPENTAL
     Dosage: UNK
     Route: 065
     Dates: start: 19981120, end: 19981120
  76. SUFENTA [Concomitant]
     Active Substance: SUFENTANIL CITRATE
     Indication: PRODUCT USED FOR UNKNOWN INDICATION
     Dosage: 5 ML, QD
     Route: 042
     Dates: start: 19981120, end: 19981120
  77. HEPARIN SODIUM. [Concomitant]
     Active Substance: HEPARIN SODIUM
     Indication: PRODUCT USED FOR UNKNOWN INDICATION
     Dosage: 15000 IU, UNK
     Route: 065
     Dates: start: 19981116, end: 19981208
  78. FENTANYL JANSSEN [Concomitant]
     Active Substance: FENTANYL
     Indication: GENERAL ANAESTHESIA
     Dosage: .25 MG, QD
     Route: 042
     Dates: start: 19981120, end: 19981120
  79. ATROPINE SULFATE. [Concomitant]
     Active Substance: ATROPINE SULFATE
     Indication: ARRHYTHMIA
     Dosage: .5 MG, QD
     Route: 042
     Dates: start: 19981120, end: 19981120
  80. METAMIZOLE SODIUM [Suspect]
     Active Substance: METAMIZOLE SODIUM
     Indication: PYREXIA
     Dosage: 20 DF,QD
     Route: 048
     Dates: start: 19981202, end: 19981202
  81. INSULIN HUMAN [Concomitant]
     Active Substance: INSULIN HUMAN
     Dosage: UNK
     Route: 065
     Dates: start: 19981120, end: 19981120
  82. RINGERS SOLUTION [Concomitant]
     Active Substance: CALCIUM CHLORIDE\POTASSIUM CHLORIDE\SODIUM CHLORIDE
     Indication: PRODUCT USED FOR UNKNOWN INDICATION
     Dosage: UNK
     Route: 065
     Dates: start: 19981120, end: 19981120
  83. PHENYTOIN SODIUM. [Concomitant]
     Active Substance: PHENYTOIN SODIUM
     Indication: PRODUCT USED FOR UNKNOWN INDICATION
     Dosage: UNK
     Route: 065
     Dates: start: 19981120, end: 19981120
  84. ISOFLURANE. [Concomitant]
     Active Substance: ISOFLURANE
     Dosage: UNK
     Route: 055
     Dates: start: 19981120, end: 19981120
  85. ATROPINE SULFATE. [Concomitant]
     Active Substance: ATROPINE SULFATE
     Dosage: UNK
     Route: 065
     Dates: start: 19981120, end: 19981120

REACTIONS (2)
  - Stevens-Johnson syndrome [Recovering/Resolving]
  - Toxic epidermal necrolysis [Recovered/Resolved]

NARRATIVE: CASE EVENT DATE: 19981207
